FAERS Safety Report 13553679 (Version 1)
Quarter: 2017Q2

REPORT INFORMATION
  Report Type: Spontaneous
  Country: US (occurrence: US)
  Receive Date: 20170517
  Receipt Date: 20170517
  Transmission Date: 20170830
  Serious: Yes (Hospitalization)
  Sender: FDA-Public Use
  Company Number: US-VERTEX PHARMACEUTICALS-2017-002547

PATIENT
  Age: 19 Year
  Sex: Female

DRUGS (2)
  1. ORKAMBI [Suspect]
     Active Substance: IVACAFTOR\LUMACAFTOR
     Dosage: 200-125 MG
     Route: 048
     Dates: start: 20170506
  2. ORKAMBI [Suspect]
     Active Substance: IVACAFTOR\LUMACAFTOR
     Indication: CYSTIC FIBROSIS
     Dosage: 2 DF (200/125MG), BID
     Route: 048
     Dates: start: 20160812, end: 2017

REACTIONS (7)
  - Viral upper respiratory tract infection [Unknown]
  - Kidney infection [Recovering/Resolving]
  - Urinary tract infection [Recovering/Resolving]
  - Fungal infection [Recovering/Resolving]
  - Gait disturbance [Recovering/Resolving]
  - Sepsis [Unknown]
  - Weight decreased [Recovering/Resolving]

NARRATIVE: CASE EVENT DATE: 2017
